FAERS Safety Report 17189699 (Version 1)
Quarter: 2019Q4

REPORT INFORMATION
  Report Type: Report from Study
  Country: US (occurrence: US)
  Receive Date: 20191223
  Receipt Date: 20191223
  Transmission Date: 20200122
  Serious: Yes (Life-Threatening, Hospitalization, Other)
  Sender: FDA-Public Use
  Company Number: US-SA-2018SA390470

PATIENT
  Age: 43 Year
  Sex: Female
  Weight: 55.33 kg

DRUGS (2)
  1. ALEMTUZUMAB [Suspect]
     Active Substance: ALEMTUZUMAB
     Dosage: 12 MG, QD
     Route: 041
     Dates: start: 20170213, end: 20170217
  2. ALEMTUZUMAB [Suspect]
     Active Substance: ALEMTUZUMAB
     Indication: MULTIPLE SCLEROSIS
     Dosage: 12 MG, QD
     Route: 041
     Dates: start: 20180219, end: 20180221

REACTIONS (22)
  - Pharyngeal swelling [Not Recovered/Not Resolved]
  - Feeding disorder [Not Recovered/Not Resolved]
  - Vomiting [Recovered/Resolved]
  - Malaise [Unknown]
  - Muscular weakness [Unknown]
  - Pancreatitis viral [Recovered/Resolved]
  - Malaise [Recovered/Resolved]
  - Seizure cluster [Not Recovered/Not Resolved]
  - Dysphagia [Recovered/Resolved]
  - Urinary tract infection [Unknown]
  - Feeding disorder [Recovered/Resolved]
  - Annular pancreas [Unknown]
  - Infectious mononucleosis [Not Recovered/Not Resolved]
  - Laboratory test abnormal [Unknown]
  - Eye contusion [Not Recovered/Not Resolved]
  - Pneumonia viral [Not Recovered/Not Resolved]
  - Bronchitis viral [Not Recovered/Not Resolved]
  - Malaise [Not Recovered/Not Resolved]
  - Herpes zoster [Unknown]
  - Weight decreased [Not Recovered/Not Resolved]
  - Fall [Recovered/Resolved]
  - Concussion [Recovered/Resolved]

NARRATIVE: CASE EVENT DATE: 2018
